FAERS Safety Report 7683159-2 (Version None)
Quarter: 2011Q3

REPORT INFORMATION
  Report Type: 
  Country: None (occurrence: None)
  Receive Date: 20110815
  Receipt Date: 20110806
  Transmission Date: 20111222
  Serious: Yes (Hospitalization)
  Sender: FDA-Public Use
  Company Number: BR-ASTRAZENECA-2011SE47495

PATIENT
  Age: 59 Year
  Sex: Female
  Weight: 34 kg

DRUGS (3)
  1. SYMBICORT [Suspect]
     Indication: CHRONIC OBSTRUCTIVE PULMONARY DISEASE
     Dosage: 160/4.5MCG, BID
     Route: 055
     Dates: start: 20080101, end: 20110801
  2. SYMBICORT [Suspect]
     Dosage: 320/9 MCG, BID
     Route: 055
     Dates: start: 20110801
  3. DUOVENT [Concomitant]
     Indication: CHRONIC OBSTRUCTIVE PULMONARY DISEASE
     Route: 055
     Dates: start: 20110801

REACTIONS (2)
  - CHRONIC OBSTRUCTIVE PULMONARY DISEASE [None]
  - OXYGEN SATURATION DECREASED [None]
